FAERS Safety Report 9769217 (Version 1)
Quarter: 2013Q3

REPORT INFORMATION
  Report Type: Spontaneous
  Country: US (occurrence: None)
  Receive Date: 20130904
  Receipt Date: 20130904
  Transmission Date: 20140515
  Serious: Yes (Death, Other)
  Sender: FDA-Public Use
  Company Number: 09-AUR-10176

PATIENT
  Sex: Male

DRUGS (1)
  1. METFORMIN (METFORMIN) [Suspect]
     Indication: GESTATIONAL DIABETES
     Route: 064
     Dates: start: 20080917, end: 20081113

REACTIONS (9)
  - Foetal death [None]
  - Maternal drugs affecting foetus [None]
  - Foetal death [None]
  - Oesophageal atresia [None]
  - Tracheo-oesophageal fistula [None]
  - Cryptorchism [None]
  - Foetal growth restriction [None]
  - Polyhydramnios [None]
  - Amniotic cavity infection [None]
